FAERS Safety Report 17966997 (Version 3)
Quarter: 2020Q3

REPORT INFORMATION
  Report Type: Spontaneous
  Country: BR (occurrence: BR)
  Receive Date: 20200701
  Receipt Date: 20200818
  Transmission Date: 20201103
  Serious: Yes (Hospitalization, Other)
  Sender: FDA-Public Use
  Company Number: BR-AMGEN-BRASP2020103950

PATIENT
  Age: 52 Year
  Sex: Female

DRUGS (1)
  1. ENBREL [Suspect]
     Active Substance: ETANERCEPT
     Indication: RHEUMATOID ARTHRITIS
     Dosage: UNK
     Route: 065
     Dates: end: 2018

REACTIONS (12)
  - Rheumatoid arthritis [Unknown]
  - Ischaemic stroke [Unknown]
  - Fibromyalgia [Unknown]
  - Ankylosing spondylitis [Unknown]
  - Drug ineffective [Unknown]
  - Memory impairment [Not Recovered/Not Resolved]
  - Renal impairment [Recovered/Resolved]
  - Systemic lupus erythematosus [Unknown]
  - Haemorrhagic stroke [Unknown]
  - Spleen disorder [Not Recovered/Not Resolved]
  - Vasculitis [Unknown]
  - Urinary tract infection [Unknown]

NARRATIVE: CASE EVENT DATE: 2018
